FAERS Safety Report 5576598-7 (Version None)
Quarter: 2007Q4

REPORT INFORMATION
  Report Type: 
  Country: None (occurrence: None)
  Receive Date: 20071228
  Receipt Date: 20071219
  Transmission Date: 20080405
  Serious: Yes (Other)
  Sender: FDA-Public Use
  Company Number: US-ABBOTT-07P-163-0431299-00

PATIENT
  Sex: Female
  Weight: 56.81 kg

DRUGS (11)
  1. DEPAKOTE [Suspect]
     Indication: CONVULSION
     Dates: start: 19940101, end: 19940101
  2. PHENYTOIN SODIUM [Suspect]
     Indication: CONVULSION
     Dates: start: 19720101
  3. PHENYTOIN SODIUM [Suspect]
     Dates: start: 19750101, end: 19940101
  4. PHENYTOIN SODIUM [Suspect]
     Dates: start: 19940101, end: 19940101
  5. PHENYTOIN SODIUM [Suspect]
     Dates: start: 19940101, end: 19970101
  6. PHENYTOIN SODIUM [Suspect]
     Dates: start: 20071101
  7. PHENYTOIN SODIUM [Suspect]
     Dates: start: 20071125, end: 20071127
  8. PHENYTOIN SODIUM [Suspect]
     Dates: start: 20071127
  9. CARBAMAZEPINE [Suspect]
     Indication: CONVULSION
     Dates: start: 19970101
  10. ALL OTHER THERAPEUTIC PRODUCTS [Suspect]
     Indication: DRUG USE FOR UNKNOWN INDICATION
  11. PRIMIDONE [Concomitant]
     Indication: DRUG USE FOR UNKNOWN INDICATION

REACTIONS (18)
  - ALOPECIA [None]
  - AMNESIA [None]
  - COMA [None]
  - CONVULSION [None]
  - DIARRHOEA [None]
  - DRUG INEFFECTIVE [None]
  - EPILEPTIC AURA [None]
  - FATIGUE [None]
  - GINGIVAL BLEEDING [None]
  - GINGIVAL HYPERPLASIA [None]
  - HALLUCINATION [None]
  - HYPOAESTHESIA FACIAL [None]
  - HYPOTHYROIDISM [None]
  - OSTEOPENIA [None]
  - RASH [None]
  - SENSORY DISTURBANCE [None]
  - SOMNOLENCE [None]
  - WEIGHT INCREASED [None]
